FAERS Safety Report 7155072-0 (Version None)
Quarter: 2010Q4

REPORT INFORMATION
  Report Type: 
  Country: None (occurrence: None)
  Receive Date: 20101214
  Receipt Date: 20100108
  Transmission Date: 20110411
  Serious: Yes (Other)
  Sender: FDA-Public Use
  Company Number: US-AMGEN-QUU355134

PATIENT

DRUGS (11)
  1. ENBREL [Suspect]
     Indication: PSORIATIC ARTHROPATHY
     Dosage: 50 MG, 2 TIMES/WK
     Route: 058
     Dates: start: 20050601
  2. ENBREL [Suspect]
     Indication: PSORIASIS
  3. LORAZEPAM [Concomitant]
  4. LORAZEPAM [Concomitant]
  5. METOPROLOL [Concomitant]
  6. NAPROXEN SODIUM [Concomitant]
  7. CLOPIDOGREL BISULFATE [Concomitant]
  8. METFORMIN [Concomitant]
  9. RAMIPRIL [Concomitant]
  10. SIMVASTATIN [Concomitant]
  11. TRAMADOL [Concomitant]

REACTIONS (6)
  - BLOOD GLUCOSE INCREASED [None]
  - HYPERTENSION [None]
  - INFLUENZA [None]
  - MYOCARDIAL INFARCTION [None]
  - PSORIASIS [None]
  - WEIGHT INCREASED [None]
